FAERS Safety Report 16961929 (Version 1)
Quarter: 2019Q4

REPORT INFORMATION
  Report Type: Spontaneous
  Country: US (occurrence: US)
  Receive Date: 20190906
  Receipt Date: 20190906
  Transmission Date: 20200122
  Serious: No
  Sender: FDA-Public Use
  Company Number: None

PATIENT
  Sex: Female

DRUGS (11)
  1. HYDROCHRLOR TAB [Concomitant]
  2. TREMFYA [Suspect]
     Active Substance: GUSELKUMAB
     Indication: PSORIASIS
     Dosage: ?          OTHER FREQUENCY:EVERY 8 WEEK;?
     Route: 058
     Dates: start: 20190107
  3. CLOBETASOL [Concomitant]
     Active Substance: CLOBETASOL
  4. NOVOLOG [Concomitant]
     Active Substance: INSULIN ASPART
  5. SIMVASTATIN. [Concomitant]
     Active Substance: SIMVASTATIN
  6. GLPIZIDE [Concomitant]
  7. LANTUS [Concomitant]
     Active Substance: INSULIN GLARGINE
  8. GLUMETZA [Concomitant]
     Active Substance: METFORMIN HYDROCHLORIDE
  9. VITAMIN B50 [Concomitant]
  10. VITAMIN D3 [Concomitant]
     Active Substance: CHOLECALCIFEROL
  11. ENALAPRIL [Concomitant]
     Active Substance: ENALAPRIL

REACTIONS (2)
  - Surgery [None]
  - Condition aggravated [None]

NARRATIVE: CASE EVENT DATE: 20190725
